FAERS Safety Report 26198935 (Version 1)
Quarter: 2025Q4

REPORT INFORMATION
  Report Type: Report from Study
  Country: US (occurrence: US)
  Receive Date: 20251225
  Receipt Date: 20251225
  Transmission Date: 20260117
  Serious: Yes (Hospitalization)
  Sender: ALEXION PHARMACEUTICALS
  Company Number: US-ASTRAZENECA-202512NAM007085US

PATIENT
  Age: 32 Year
  Sex: Female

DRUGS (1)
  1. OLAPARIB [Suspect]
     Active Substance: OLAPARIB
     Indication: Breast cancer female
     Dosage: 300 MILLIGRAM, BID
     Route: 061
     Dates: start: 20251117, end: 20251209

REACTIONS (5)
  - Gingival bleeding [Recovered/Resolved]
  - Platelet count decreased [Unknown]
  - Contusion [Recovered/Resolved]
  - Petechiae [Recovered/Resolved]
  - Rash macular [Recovered/Resolved]

NARRATIVE: CASE EVENT DATE: 20251205
